FAERS Safety Report 20920817 (Version 1)
Quarter: 2022Q2

REPORT INFORMATION
  Report Type: Spontaneous
  Country: US (occurrence: None)
  Receive Date: 20220606
  Receipt Date: 20220606
  Transmission Date: 20220720
  Serious: Yes (Disabling)
  Sender: FDA-Public Use
  Company Number: None

PATIENT
  Age: 67 Year
  Sex: Female

DRUGS (5)
  1. ANTI-BACTERIAL HAND GEL [Suspect]
     Active Substance: ALCOHOL
     Indication: Infection prophylaxis
     Dates: start: 20201111, end: 20201127
  2. GABAPENTIN [Concomitant]
     Active Substance: GABAPENTIN
  3. BIOTIN [Concomitant]
     Active Substance: BIOTIN
  4. ZINC [Concomitant]
     Active Substance: ZINC
  5. RUTIN [Concomitant]
     Active Substance: RUTIN

REACTIONS (1)
  - Rash [None]

NARRATIVE: CASE EVENT DATE: 20201122
